FAERS Safety Report 10064613 (Version 2)
Quarter: 2014Q2

REPORT INFORMATION
  Report Type: Spontaneous
  Country: US (occurrence: None)
  Receive Date: 20140404
  Receipt Date: 20140409
  Transmission Date: 20141212
  Serious: Yes (Life-Threatening)
  Sender: FDA-Public Use
  Company Number: FK201401112

PATIENT
  Age: 41 Year
  Sex: Female

DRUGS (7)
  1. PROPOFOL [Suspect]
     Indication: SEDATION
     Dosage: (NOT OTHERWISE SPECIFIED)
     Route: 042
  2. BENZTROPINE (BENZTROPINE MESILATE) (BENZTROPINE MESILATE) [Concomitant]
  3. CLOMIPRAMINE HYDROCHLORIDE (CLOMIPRAMINE HYDROCHLORIDE) (CLOMIPRAMINE HYDROCHLORIDE) [Concomitant]
  4. CLONAZEPAM (CLONAZEPAM) (CLONAZEPAM) [Concomitant]
  5. LAMOTRIGINE (LAMOTRIGINE) (LAMOTRIGINE) [Concomitant]
  6. LITHIUM [Concomitant]
  7. ZIPRASIDONE (ZIPRASIDONE) (ZIPRASIDONE) [Concomitant]

REACTIONS (2)
  - Multi-organ failure [None]
  - Hyperthermia malignant [None]
